FAERS Safety Report 18540313 (Version 3)
Quarter: 2020Q4

REPORT INFORMATION
  Report Type: Report from Study
  Country: CA (occurrence: CA)
  Receive Date: 20201124
  Receipt Date: 20201216
  Transmission Date: 20210114
  Serious: Yes (Hospitalization)
  Sender: FDA-Public Use
  Company Number: CA-IPSEN BIOPHARMACEUTICALS, INC.-2020-19346

PATIENT
  Age: 81 Year
  Sex: Female

DRUGS (13)
  1. DEXTRAN [Concomitant]
     Active Substance: DEXTRAN
  2. AMLODIPINE [Concomitant]
     Active Substance: AMLODIPINE BESYLATE
  3. SOMATULINE AUTOGEL [Suspect]
     Active Substance: LANREOTIDE ACETATE
     Indication: NEUROENDOCRINE TUMOUR
     Route: 058
     Dates: start: 20200923, end: 2020
  4. JANUVIA [Concomitant]
     Active Substance: SITAGLIPTIN PHOSPHATE
  5. MORPHINE [Concomitant]
     Active Substance: MORPHINE
  6. METHYLPHENIDATE. [Concomitant]
     Active Substance: METHYLPHENIDATE
  7. BETAHISTINE [Concomitant]
     Active Substance: BETAHISTINE
  8. PREGABALIN. [Concomitant]
     Active Substance: PREGABALIN
  9. AMYLASE-LIPASE-PROTEASE [Concomitant]
  10. POLYETHYLENE GLYCOL [Concomitant]
     Active Substance: POLYETHYLENE GLYCOLS
  11. METONIA [Concomitant]
     Active Substance: METOCLOPRAMIDE
  12. NABILONE [Concomitant]
     Active Substance: NABILONE
  13. ESCITALOPRAM [Concomitant]
     Active Substance: ESCITALOPRAM OXALATE

REACTIONS (5)
  - Pain [Unknown]
  - Pollakiuria [Unknown]
  - Constipation [Not Recovered/Not Resolved]
  - Headache [Not Recovered/Not Resolved]
  - Pyrexia [Not Recovered/Not Resolved]

NARRATIVE: CASE EVENT DATE: 2020
